FAERS Safety Report 11880566 (Version 1)
Quarter: 2015Q4

REPORT INFORMATION
  Report Type: Spontaneous
  Country: US (occurrence: US)
  Receive Date: 20151230
  Receipt Date: 20151230
  Transmission Date: 20160305
  Serious: No
  Sender: FDA-Public Use
  Company Number: US-GLAXOSMITHKLINE-US2015180431

PATIENT
  Sex: Female

DRUGS (1)
  1. LAMOTRIGINE TABLET [Suspect]
     Active Substance: LAMOTRIGINE
     Indication: SEIZURE

REACTIONS (2)
  - Drug ineffective [Recovered/Resolved]
  - Product substitution issue [Recovered/Resolved]
